FAERS Safety Report 24202779 (Version 2)
Quarter: 2024Q3

REPORT INFORMATION
  Report Type: Spontaneous
  Country: JP (occurrence: JP)
  Receive Date: 20240813
  Receipt Date: 20240902
  Transmission Date: 20241017
  Serious: Yes (Death, Other)
  Sender: AMGEN
  Company Number: JP-KYOWAKIRIN-2024KK018732

PATIENT
  Age: 6 Decade
  Sex: Male

DRUGS (2)
  1. PEGFILGRASTIM [Suspect]
     Active Substance: PEGFILGRASTIM
     Indication: Product used for unknown indication
     Dosage: UNK
     Route: 058
  2. AMRUBICIN HYDROCHLORIDE [Suspect]
     Active Substance: AMRUBICIN HYDROCHLORIDE
     Indication: Product used for unknown indication
     Dosage: 40 MG/M2
     Route: 065

REACTIONS (1)
  - Febrile neutropenia [Fatal]
